FAERS Safety Report 5423476-X (Version None)
Quarter: 2007Q3

REPORT INFORMATION
  Report Type: 
  Country: None (occurrence: None)
  Receive Date: 20070823
  Receipt Date: 20070813
  Transmission Date: 20080115
  Serious: Yes (Other)
  Sender: FDA-Public Use
  Company Number: US-JNJFOC-20070802947

PATIENT
  Sex: Male
  Weight: 81.69 kg

DRUGS (5)
  1. REOPRO [Suspect]
     Indication: PERCUTANEOUS CORONARY INTERVENTION
  2. ANGIOMAX [Suspect]
  3. ANGIOMAX [Suspect]
  4. ANGIOMAX [Suspect]
  5. ANGIOMAX [Suspect]
     Indication: PERCUTANEOUS CORONARY INTERVENTION

REACTIONS (4)
  - COAGULATION TIME ABNORMAL [None]
  - CORONARY ARTERY THROMBOSIS [None]
  - GASTROINTESTINAL HAEMORRHAGE [None]
  - PULMONARY HAEMORRHAGE [None]
